FAERS Safety Report 6633346-7 (Version None)
Quarter: 2010Q1

REPORT INFORMATION
  Report Type: 
  Country: None (occurrence: None)
  Receive Date: 20100312
  Receipt Date: 20100302
  Transmission Date: 20100710
  Serious: Yes (Other)
  Sender: FDA-Public Use
  Company Number: AU-ELI_LILLY_AND_COMPANY-AU201002000994

PATIENT
  Age: 68 Year
  Sex: Female

DRUGS (7)
  1. CYMBALTA [Suspect]
     Indication: DEPRESSION
     Dosage: UNK, UNKNOWN
     Route: 048
     Dates: start: 20091101, end: 20090101
  2. CYMBALTA [Suspect]
     Dosage: 180 MG, DAILY (1/D)
     Route: 048
     Dates: start: 20090101
  3. CYMBALTA [Suspect]
     Dosage: 60 MG, DAILY (1/D)
     Route: 048
     Dates: end: 20100202
  4. XANAX [Concomitant]
     Dosage: UNK, UNKNOWN
     Route: 065
  5. LIPITOR [Concomitant]
     Dosage: UNK, UNKNOWN
     Route: 065
  6. SOMAC [Concomitant]
     Dosage: UNK, UNKNOWN
     Route: 065
  7. ESTRADERM [Concomitant]
     Dosage: UNK, UNKNOWN
     Route: 065

REACTIONS (10)
  - BLISTER [None]
  - DIARRHOEA [None]
  - GASTRIC ULCER [None]
  - HEADACHE [None]
  - MOUTH ULCERATION [None]
  - OROPHARYNGEAL BLISTERING [None]
  - OVERDOSE [None]
  - PAIN IN EXTREMITY [None]
  - VASCULITIS [None]
  - VIRAL INFECTION [None]
